FAERS Safety Report 9144559 (Version 1)
Quarter: 2013Q1

REPORT INFORMATION
  Report Type: Spontaneous
  Country: US (occurrence: US)
  Receive Date: 20130306
  Receipt Date: 20130306
  Transmission Date: 20140127
  Serious: Yes (Hospitalization)
  Sender: FDA-Public Use
  Company Number: PHHY2013US020259

PATIENT
  Age: 67 Year
  Sex: Female

DRUGS (2)
  1. PARACETAMOL [Suspect]
     Dosage: 1000 MG, Q6H
     Route: 048
  2. PARACETAMOL [Suspect]
     Dosage: 60 G, CUMULATIVE DOSE
     Route: 048

REACTIONS (7)
  - Wound dehiscence [Recovering/Resolving]
  - Septic shock [Recovering/Resolving]
  - Confusional state [Recovering/Resolving]
  - Metabolic acidosis [Recovering/Resolving]
  - Pyroglutamate increased [Recovering/Resolving]
  - Blood urea increased [Recovering/Resolving]
  - International normalised ratio increased [Recovering/Resolving]
